FAERS Safety Report 23121623 (Version 2)
Quarter: 2023Q4

REPORT INFORMATION
  Report Type: Other
  Country: PL (occurrence: PL)
  Receive Date: 20231029
  Receipt Date: 20231106
  Transmission Date: 20240110
  Serious: Yes (Hospitalization, Other)
  Sender: FDA-Public Use
  Company Number: None

PATIENT
  Age: 26 Year
  Sex: Female

DRUGS (45)
  1. IBUPROFEN [Suspect]
     Active Substance: IBUPROFEN
     Indication: Analgesic therapy
     Dosage: 800 MILLIGRAM, QD, 400 MILLIGRAM, BID
     Route: 065
  2. IBUPROFEN [Suspect]
     Active Substance: IBUPROFEN
     Indication: Pain
     Dosage: 800 MILLIGRAM, QD, 400 MILLIGRAM, BID
     Route: 065
  3. IBUPROFEN [Suspect]
     Active Substance: IBUPROFEN
     Indication: Neuralgia
  4. PREDNISONE [Suspect]
     Active Substance: PREDNISONE
     Indication: Analgesic therapy
     Dosage: 10 MILLIGRAM, TABLET
     Route: 048
  5. PREDNISONE [Suspect]
     Active Substance: PREDNISONE
     Indication: Neuralgia
     Dosage: TABLET
     Route: 065
  6. PREDNISONE [Suspect]
     Active Substance: PREDNISONE
     Dosage: 10 MILLIGRAM, TABLET
     Route: 048
  7. GABAPENTIN [Suspect]
     Active Substance: GABAPENTIN
     Indication: Polyneuropathy
     Dosage: 1800 MILLIGRAM, QD, 600 UNK
     Route: 065
  8. GABAPENTIN [Suspect]
     Active Substance: GABAPENTIN
     Indication: Neuralgia
     Dosage: 400 MILLIGRAM
     Route: 065
  9. GABAPENTIN [Suspect]
     Active Substance: GABAPENTIN
     Dosage: 400 MILLIGRAM, QD
     Route: 065
  10. GABAPENTIN [Suspect]
     Active Substance: GABAPENTIN
     Dosage: 1200 MILLIGRAM, QD, 400 MG, TID
     Route: 065
  11. GABAPENTIN [Suspect]
     Active Substance: GABAPENTIN
     Dosage: 600 MILLIGRAM, QD
     Route: 065
  12. LEVETIRACETAM [Suspect]
     Active Substance: LEVETIRACETAM
     Indication: Polyneuropathy
     Dosage: 2000 MILLIGRAM, QD
     Route: 065
  13. LEVETIRACETAM [Suspect]
     Active Substance: LEVETIRACETAM
     Indication: Myoclonus
     Dosage: 1600 MILLIGRAM, QD, 800 MILLIGRAM, BID
     Route: 065
  14. LEVETIRACETAM [Suspect]
     Active Substance: LEVETIRACETAM
     Indication: Nervous system disorder
     Dosage: 1600 MILLIGRAM, QD, 800 MILLIGRAM, BID
     Route: 065
  15. LEVETIRACETAM [Suspect]
     Active Substance: LEVETIRACETAM
     Dosage: 2000 MILLIGRAM, QD, 1000 MILLIGRAM, BID
     Route: 065
  16. FENTANYL [Suspect]
     Active Substance: FENTANYL\FENTANYL CITRATE
     Indication: Neuralgia
     Dosage: 150 MILLIGRAM, Q72H
     Route: 062
  17. FENTANYL [Suspect]
     Active Substance: FENTANYL\FENTANYL CITRATE
     Indication: Analgesic therapy
     Dosage: 150 MICROGRAM, Q1HR
     Route: 062
  18. FENTANYL [Suspect]
     Active Substance: FENTANYL\FENTANYL CITRATE
     Indication: Neuralgia
     Dosage: 300 MICROGRAM, Q1HR
     Route: 062
  19. PREDNISONE [Suspect]
     Active Substance: PREDNISONE
     Indication: Neuralgia
     Dosage: 10 MILLIGRAM, TABLET
     Route: 048
  20. PREDNISONE [Suspect]
     Active Substance: PREDNISONE
     Dosage: 10 MILLIGRAM
     Route: 048
  21. PIRACETAM [Suspect]
     Active Substance: PIRACETAM
     Indication: Polyneuropathy
     Dosage: 4800 MILLIGRAM, QD
     Route: 065
  22. PIRACETAM [Suspect]
     Active Substance: PIRACETAM
     Indication: Nervous system disorder
     Dosage: 4800 MILLIGRAM, QD
     Route: 065
  23. MORPHINE [Suspect]
     Active Substance: MORPHINE
     Indication: Pain
     Dosage: 60 MILLIGRAM, QD, 30 MILLIGRAM, BID
     Route: 065
  24. CLONAZEPAM [Suspect]
     Active Substance: CLONAZEPAM
     Indication: Polyneuropathy
     Dosage: 1 MILLIGRAM, QD
     Route: 065
  25. PAROXETINE [Suspect]
     Active Substance: PAROXETINE
     Indication: Polyneuropathy
     Dosage: 80 MILLIGRAM
     Route: 065
  26. PAROXETINE [Suspect]
     Active Substance: PAROXETINE
     Indication: Nervous system disorder
     Dosage: 40 MILLIGRAM, QD, 1 X 40 MG IN THE MORNING
     Route: 065
  27. FENTANYL [Suspect]
     Active Substance: FENTANYL\FENTANYL CITRATE
     Indication: Pain
     Dosage: 300 MICROGRAM, Q1HR
     Route: 045
  28. FENTANYL [Suspect]
     Active Substance: FENTANYL\FENTANYL CITRATE
     Indication: Neuralgia
     Dosage: 300 MICROGRAM, Q1HR
     Route: 045
  29. FENTANYL [Suspect]
     Active Substance: FENTANYL\FENTANYL CITRATE
     Dosage: 150 MICROGRAM, Q72H
     Route: 045
  30. FENTANYL [Suspect]
     Active Substance: FENTANYL\FENTANYL CITRATE
     Dosage: 150 MICROGRAM, Q1HR
     Route: 045
  31. VALPROIC ACID [Suspect]
     Active Substance: VALPROIC ACID
     Indication: Neuralgia
     Dosage: 600 MILLIGRAM, QD, 300 MILLIGRAM, BID
     Route: 065
  32. VALPROIC ACID [Suspect]
     Active Substance: VALPROIC ACID
     Dosage: 600 MILLIGRAM, QD, 300 MILLIGRAM, BID
     Route: 065
  33. VALPROATE [Suspect]
     Active Substance: VALPROIC ACID
     Indication: Neuralgia
     Dosage: 600 MILLIGRAM, QD, 300 MILLIGRAM, BID
     Route: 065
  34. PAROXETINE [Concomitant]
     Active Substance: PAROXETINE
     Indication: Product used for unknown indication
     Dosage: 40 MILLIGRAM, QD
     Route: 065
  35. PIRACETAM [Concomitant]
     Active Substance: PIRACETAM
     Indication: Nervous system disorder
     Dosage: 4800 MILLIGRAM, QD, 2400 MILLIGRAM, BID
     Route: 065
  36. CLONAZEPAM [Concomitant]
     Active Substance: CLONAZEPAM
     Indication: Myoclonus
     Dosage: 1 MILLIGRAM, QD, 0.5 MILLIGRAM, BID
     Route: 065
  37. CLONAZEPAM [Concomitant]
     Active Substance: CLONAZEPAM
     Indication: Nervous system disorder
  38. DULOXETINE [Concomitant]
     Active Substance: DULOXETINE
     Indication: Pain
     Dosage: UNK
     Route: 065
  39. VALPROIC ACID [Concomitant]
     Active Substance: VALPROIC ACID
     Indication: Product used for unknown indication
     Dosage: 600 MILLIGRAM, QD, 300 MILLIGRAM, BID
     Route: 065
  40. AMITRIPTYLINE [Concomitant]
     Active Substance: AMITRIPTYLINE
     Indication: Pain
     Dosage: 50 MILLIGRAM, QD
     Route: 065
  41. GABAPENTIN [Concomitant]
     Active Substance: GABAPENTIN
     Indication: Neuralgia
     Dosage: 1200 MILLIGRAM, QD, 400 MILLIGRAM, TID
     Route: 065
  42. GABAPENTIN [Concomitant]
     Active Substance: GABAPENTIN
     Dosage: 600 MILLIGRAM, Q8HR
     Route: 065
  43. GABAPENTIN [Concomitant]
     Active Substance: GABAPENTIN
     Dosage: 600 MILLIGRAM, QD, 600 MILLIGRAM, QD
     Route: 065
  44. GABAPENTIN [Concomitant]
     Active Substance: GABAPENTIN
     Dosage: 400 MILLIGRAM, Q8HR
     Route: 065
  45. IBUPROFEN [Concomitant]
     Active Substance: IBUPROFEN
     Indication: Analgesic therapy
     Dosage: 800 MILLIGRAM, QD, 400 MILLIGRAM, BID
     Route: 065

REACTIONS (24)
  - Disorganised speech [Recovered/Resolved]
  - Myoclonus [Recovered/Resolved]
  - Restlessness [Recovered/Resolved]
  - Mitochondrial encephalomyopathy [Recovered/Resolved]
  - Abdominal pain [Recovered/Resolved]
  - Speech disorder [Recovered/Resolved]
  - Hypoaesthesia [Recovered/Resolved]
  - Neuralgia [Recovered/Resolved]
  - Disorientation [Recovered/Resolved]
  - Mitochondrial toxicity [Recovered/Resolved]
  - Condition aggravated [Recovered/Resolved]
  - Pain in extremity [Recovered/Resolved]
  - Pain [Recovered/Resolved]
  - Pain [Recovered/Resolved]
  - Somnolence [Recovered/Resolved]
  - Somnolence [Recovered/Resolved]
  - Drug abuse [Recovered/Resolved]
  - Drug ineffective [Unknown]
  - Overdose [Unknown]
  - Product selection error [Recovered/Resolved]
  - Wrong product administered [Recovered/Resolved]
  - Medication error [Unknown]
  - Off label use [Unknown]
  - Drug dependence [Recovered/Resolved]

NARRATIVE: CASE EVENT DATE: 20220515
